FAERS Safety Report 17305669 (Version 1)
Quarter: 2020Q1

REPORT INFORMATION
  Report Type: Spontaneous
  Country: US (occurrence: US)
  Receive Date: 20200123
  Receipt Date: 20200123
  Transmission Date: 20200409
  Serious: Yes (Hospitalization, Other)
  Sender: FDA-Public Use
  Company Number: US-BRISTOL-MYERS SQUIBB COMPANY-BMS-2020-004688

PATIENT
  Age: 66 Year
  Sex: Male

DRUGS (2)
  1. IPILIMUMAB [Suspect]
     Active Substance: IPILIMUMAB
     Indication: PANCREATIC CARCINOMA METASTATIC
     Dosage: 2 CYCLES
     Route: 065
  2. EVOFOSFAMIDE [Suspect]
     Active Substance: EVOFOSFAMIDE
     Indication: PANCREATIC CARCINOMA METASTATIC
     Dosage: 2 CYCLES
     Route: 065

REACTIONS (3)
  - Intentional product use issue [Unknown]
  - Immune-mediated pneumonitis [Recovered/Resolved]
  - Immune-mediated hepatitis [Unknown]
